FAERS Safety Report 6700086-5 (Version None)
Quarter: 2010Q2

REPORT INFORMATION
  Report Type: 
  Country: None (occurrence: None)
  Receive Date: 20100428
  Receipt Date: 20100423
  Transmission Date: 20101027
  Serious: Yes (Death, Hospitalization)
  Sender: FDA-Public Use
  Company Number: JP-BAYER-200913808BYL

PATIENT
  Age: 78 Year
  Sex: Male
  Weight: 72 kg

DRUGS (9)
  1. NEXAVAR [Suspect]
     Indication: HEPATIC NEOPLASM MALIGNANT
     Dosage: TOTAL DAILY DOSE: 800 MG  UNIT DOSE: 200 MG
     Route: 048
     Dates: start: 20090724, end: 20090913
  2. MELBIN [Concomitant]
     Dosage: FROM BEFORE ADMINISTRATION
     Route: 048
  3. GLIMICRON [Concomitant]
     Dosage: TOTAL DAILY DOSE: 800 MG
     Route: 048
  4. ADALAT [Concomitant]
     Dosage: FROM BEFORE ADMINISTRATION
     Route: 048
  5. ACTOS [Concomitant]
     Dosage: FROM BEFORE ADMINISTRATION
     Route: 048
  6. ATARAX [Concomitant]
     Indication: INSOMNIA
     Dosage: FROM BEFORE ADMINISTRATION
     Route: 048
  7. LASIX [Concomitant]
     Dosage: FROM BEFORE ADMINISTRATION
     Route: 048
  8. MUCOSTA [Concomitant]
     Indication: GASTRITIS PROPHYLAXIS
     Dosage: TOTAL DAILY DOSE: 300 MG
     Route: 048
     Dates: start: 20090724
  9. ALBUMIN (HUMAN) [Concomitant]
     Indication: ASCITES
     Dosage: UNIT DOSE: 25 %
     Route: 042
     Dates: start: 20091003, end: 20091005

REACTIONS (7)
  - ABDOMINAL PAIN UPPER [None]
  - ASCITES [None]
  - DECREASED APPETITE [None]
  - DIARRHOEA [None]
  - HEPATIC FAILURE [None]
  - HEPATIC NEOPLASM MALIGNANT [None]
  - OEDEMA PERIPHERAL [None]
